FAERS Safety Report 24457803 (Version 1)
Quarter: 2024Q4

REPORT INFORMATION
  Report Type: Report from Study
  Country: US (occurrence: US)
  Receive Date: 20241018
  Receipt Date: 20241018
  Transmission Date: 20250115
  Serious: No
  Sender: ROCHE
  Company Number: US-ROCHE-3431792

PATIENT
  Age: 48 Year
  Sex: Female

DRUGS (4)
  1. CATHFLO ACTIVASE [Suspect]
     Active Substance: ALTEPLASE
     Indication: Chemotherapy
     Dosage: DATE OF SERVICE: 27/JUN/2022, 12/SEP/2023 (2MG, SYRINGE)?CATHFLO ACTIVASE 2 MG ON 01/11/2021
     Route: 065
  2. CATHFLO ACTIVASE [Suspect]
     Active Substance: ALTEPLASE
     Indication: Bacteraemia
     Dosage: 4 MG ON 02/01/2021
     Route: 065
  3. ACTIVASE [Suspect]
     Active Substance: ALTEPLASE
     Indication: Bacteraemia
     Dosage: 1MG/ML SYRINGE 2MG
     Route: 050
  4. ACTIVASE [Suspect]
     Active Substance: ALTEPLASE
     Indication: Chemotherapy

REACTIONS (2)
  - Off label use [Unknown]
  - No adverse event [Unknown]
